FAERS Safety Report 7081925-8 (Version None)
Quarter: 2010Q4

REPORT INFORMATION
  Report Type: 
  Country: None (occurrence: None)
  Receive Date: 20101103
  Receipt Date: 20101026
  Transmission Date: 20110411
  Serious: Yes (Other)
  Sender: FDA-Public Use
  Company Number: IT-PFIZER INC-2010136403

PATIENT
  Age: 74 Year
  Sex: Female

DRUGS (2)
  1. ZYVOX [Suspect]
     Dosage: UNK
     Dates: start: 20101016
  2. DIFLUCAN [Suspect]
     Dosage: UNK

REACTIONS (1)
  - SINUS TACHYCARDIA [None]
